FAERS Safety Report 17099711 (Version 2)
Quarter: 2021Q4

REPORT INFORMATION
  Report Type: Spontaneous
  Country: DE (occurrence: DE)
  Receive Date: 20191202
  Receipt Date: 20211123
  Transmission Date: 20220304
  Serious: Yes (Hospitalization, Other)
  Sender: FDA-Public Use
  Company Number: None

PATIENT
  Age: 40 Year
  Sex: Female
  Weight: 60 kg

DRUGS (7)
  1. DICLOFENAC [Suspect]
     Active Substance: DICLOFENAC
     Indication: Product used for unknown indication
     Dosage: 75 MILLIGRAM, BID (1-0-1-0)
  2. PANTOPRAZOLE [Concomitant]
     Active Substance: PANTOPRAZOLE
     Dosage: 40 MILLIGRAM (1-0-0-0)
  3. PANTOPRAZOLE [Concomitant]
     Active Substance: PANTOPRAZOLE
     Dosage: 40 MILLIGRAM, QD (1-0-0-0)
  4. TINZAPARIN [Concomitant]
     Active Substance: TINZAPARIN
     Dosage: 7000 INTERNATIONAL UNIT, QD, (1-0-0-0)
  5. TINZAPARIN [Concomitant]
     Active Substance: TINZAPARIN
     Dosage: 7000 INTERNATIONAL UNIT (1-0-0-0)
  6. AMOXICILLIN\CLAVULANATE POTASSIUM [Concomitant]
     Active Substance: AMOXICILLIN\CLAVULANATE POTASSIUM
     Dosage: 875, 125 MG, 1-1-1-0
  7. AMOXICILLIN\CLAVULANATE POTASSIUM [Concomitant]
     Active Substance: AMOXICILLIN\CLAVULANATE POTASSIUM
     Dosage: 875, 125 MG, 1-1-1-0
     Route: 065
     Dates: start: 20160911

REACTIONS (3)
  - Embolism [Unknown]
  - Thrombosis [Unknown]
  - Product prescribing error [Unknown]
